FAERS Safety Report 8491182 (Version 6)
Quarter: 2012Q4

REPORT INFORMATION
  Report Type: 
  Country: US (occurrence: US)
  Receive Date: 20120403
  Receipt Date: 20120928
  Transmission Date: 20130627
  Serious: Yes (Hospitalization, Other)
  Sender: FDA-Public Use
  Company Number: US-PFIZER INC-2012082166

PATIENT
  Age: 48 Year
  Sex: Female
  Weight: 94.79 kg

DRUGS (7)
  1. ZOSYN [Suspect]
     Indication: SEPSIS
     Dosage: UNK
     Route: 042
     Dates: start: 20110103, end: 201101
  2. DILANTIN [Concomitant]
     Indication: CONVULSION
     Dosage: UNK
  3. INSULIN [Concomitant]
     Indication: DIABETES MELLITUS
     Dosage: 15 IU, daily
  4. TOBRAMYCIN [Concomitant]
     Indication: SEPSIS
     Dosage: UNK
     Dates: start: 20110103
  5. DIFLUCAN [Concomitant]
     Indication: SEPSIS
     Dosage: UNK
     Dates: start: 20110103
  6. VANCOMYCIN [Concomitant]
     Indication: SEPSIS
     Dosage: UNK
     Dates: start: 20110103, end: 20110107
  7. TEGRETOL [Concomitant]
     Indication: CONVULSION
     Dosage: UNK

REACTIONS (7)
  - Stevens-Johnson syndrome [Recovered/Resolved]
  - Skin exfoliation [Recovering/Resolving]
  - Pruritus [Recovering/Resolving]
  - Alopecia [Not Recovered/Not Resolved]
  - Blister [Recovered/Resolved]
  - Blister [Unknown]
  - Back pain [Unknown]
